FAERS Safety Report 10505230 (Version 1)
Quarter: 2014Q3

REPORT INFORMATION
  Report Type: Spontaneous
  Country: US (occurrence: None)
  Receive Date: 20140926
  Receipt Date: 20140926
  Transmission Date: 20150326
  Serious: Yes (Other)
  Sender: FDA-Public Use
  Company Number: US-MDCO-14-00128

PATIENT
  Age: 62 Year
  Sex: Male

DRUGS (1)
  1. CLEVIPREX [Suspect]
     Active Substance: CLEVIDIPINE
     Indication: MALIGNANT HYPERTENSION
     Dosage: INTIALLY 2 MG/HR, MAX DOSE 16 MG/HR, NOT REPORTED 22-NOV-2013 AT 2:00 PM - 24-NOV-2013 AT 2:33 PM
     Dates: start: 20131122, end: 20131124

REACTIONS (1)
  - Blood triglycerides increased [None]

NARRATIVE: CASE EVENT DATE: 20131124
